FAERS Safety Report 7623457-1 (Version None)
Quarter: 2011Q3

REPORT INFORMATION
  Report Type: 
  Country: None (occurrence: None)
  Receive Date: 20110720
  Receipt Date: 20110712
  Transmission Date: 20111222
  Serious: Yes (Death)
  Sender: FDA-Public Use
  Company Number: PHHY2011VE62611

PATIENT
  Sex: Female

DRUGS (2)
  1. TOPIRAMATE [Suspect]
     Route: 065
  2. LAMOTRIGINE [Suspect]

REACTIONS (1)
  - STEVENS-JOHNSON SYNDROME [None]
